FAERS Safety Report 16881928 (Version 4)
Quarter: 2021Q1

REPORT INFORMATION
  Report Type: Spontaneous
  Country: CH (occurrence: CH)
  Receive Date: 20191003
  Receipt Date: 20210101
  Transmission Date: 20210419
  Serious: Yes (Hospitalization, Other)
  Sender: FDA-Public Use
  Company Number: CH-MYLANLABS-2019M1092999

PATIENT
  Age: 35 Year
  Sex: Female

DRUGS (10)
  1. DALMADORM [Suspect]
     Active Substance: FLURAZEPAM HYDROCHLORIDE
     Indication: PRODUCT USED FOR UNKNOWN INDICATION
     Dosage: 15 MILLIGRAM, QD
     Route: 048
     Dates: end: 20191017
  2. DESCOVY [Concomitant]
     Active Substance: EMTRICITABINE\TENOFOVIR ALAFENAMIDE FUMARATE
     Dosage: 1 DOSAGE FORM, QD
     Route: 048
  3. RISPERDAL [Concomitant]
     Active Substance: RISPERIDONE
     Dosage: UNK
     Dates: start: 2018, end: 2018
  4. SEROQUEL [Concomitant]
     Active Substance: QUETIAPINE FUMARATE
     Dosage: 100 MILLIGRAM, QD
     Dates: end: 2018
  5. DALMADORM [Interacting]
     Active Substance: FLURAZEPAM HYDROCHLORIDE
     Dosage: 30 MILLIGRAM, QD
     Route: 048
     Dates: start: 20191017
  6. CLOPIXOL                           /00876702/ [Interacting]
     Active Substance: ZUCLOPENTHIXOL ACETATE
     Dosage: 20 MILLIGRAM, QD
     Route: 048
     Dates: start: 20190718, end: 20190926
  7. ABILIFY [Concomitant]
     Active Substance: ARIPIPRAZOLE
     Dosage: UNK
     Dates: start: 2018, end: 2018
  8. CLOPIXOL                           /00876702/ [Interacting]
     Active Substance: ZUCLOPENTHIXOL ACETATE
     Dosage: 30 MILLIGRAM, QD
     Route: 048
     Dates: start: 20190711, end: 20190718
  9. CLOPIXOL                           /00876702/ [Interacting]
     Active Substance: ZUCLOPENTHIXOL ACETATE
     Indication: SEDATIVE THERAPY
     Dosage: 40 MILLIGRAM, QD
     Route: 048
     Dates: start: 2018, end: 20190711
  10. ISENTRESS [Concomitant]
     Active Substance: RALTEGRAVIR POTASSIUM
     Dosage: 600 MILLIGRAM, Q2D
     Route: 048

REACTIONS (4)
  - Salivary hypersecretion [Not Recovered/Not Resolved]
  - Psychomotor skills impaired [Recovered/Resolved]
  - Psychiatric decompensation [Unknown]
  - Drug interaction [Unknown]

NARRATIVE: CASE EVENT DATE: 2019
